FAERS Safety Report 9032244 (Version 1)
Quarter: 2013Q1

REPORT INFORMATION
  Report Type: Spontaneous
  Country: FR (occurrence: FR)
  Receive Date: 20130122
  Receipt Date: 20130122
  Transmission Date: 20140127
  Serious: Yes (Other)
  Sender: FDA-Public Use
  Company Number: FR-NOVOPROD-368980

PATIENT
  Age: 78 Year
  Sex: Female

DRUGS (24)
  1. NOVORAPID [Suspect]
     Indication: DIABETES MELLITUS
     Dosage: FROM 4 TO 10 IU THREE TIMES DAILY
     Route: 058
     Dates: start: 20120920
  2. NEXAVAR [Suspect]
     Indication: RENAL CELL CARCINOMA
     Dosage: UNK UNK, QD
     Route: 048
  3. NEXAVAR [Suspect]
     Dosage: UNK UNK, QD
     Route: 048
  4. NEXAVAR [Suspect]
     Dosage: 2 UNK, UNK
     Route: 048
     Dates: start: 20121002
  5. NEXAVAR [Suspect]
     Dosage: UNK UNK, QD
     Route: 048
     Dates: start: 20121019
  6. SOLUPRED                           /00016201/ [Suspect]
     Indication: DYSPNOEA
     Dosage: 60 MG, QD
     Route: 048
  7. AMOXICILLIN/CLAVULANIC ACID [Suspect]
     Dosage: 3 DOSES DAILY
     Route: 048
     Dates: start: 20120922, end: 20120926
  8. LASILIX                            /00032601/ [Concomitant]
     Dosage: 20 MG, QD
     Dates: start: 20120924
  9. LASILIX                            /00032601/ [Concomitant]
     Dosage: 60 MG, QD
  10. FUMAFER [Concomitant]
  11. PRIMPERAN [Concomitant]
  12. IPRATROPIUM [Concomitant]
  13. SERESTA [Concomitant]
  14. LEVOTHYROX [Concomitant]
  15. ZOPHREN                            /00955301/ [Concomitant]
     Dosage: 8 MG, BID
  16. ZOLOFT [Concomitant]
  17. BRICANYL [Concomitant]
  18. GAVISCON                           /00237601/ [Concomitant]
  19. CARDENSIEL [Concomitant]
  20. DIFFU K [Concomitant]
  21. DOLIPRANE [Concomitant]
  22. NEORECORMON [Concomitant]
     Dosage: 30000 IU, QW
  23. INEXIUM /01479302/ [Concomitant]
  24. FOLIC ACID [Concomitant]

REACTIONS (1)
  - Cardiac failure [Recovered/Resolved]
